FAERS Safety Report 7338558-5 (Version None)
Quarter: 2011Q1

REPORT INFORMATION
  Report Type: 
  Country: None (occurrence: None)
  Receive Date: 20110308
  Receipt Date: 20110301
  Transmission Date: 20110831
  Serious: Yes (Other)
  Sender: FDA-Public Use
  Company Number: US-SANOFI-AVENTIS-2011SA013453

PATIENT
  Age: 70 Year
  Sex: Male

DRUGS (7)
  1. LISINOPRIL [Concomitant]
  2. NOVOLOG [Concomitant]
     Indication: TYPE 2 DIABETES MELLITUS
     Route: 065
  3. ATENOLOL [Concomitant]
  4. LIPITOR [Concomitant]
  5. LANTUS [Suspect]
     Indication: TYPE 2 DIABETES MELLITUS
     Dosage: DOSE:30 UNIT(S)
     Route: 058
     Dates: start: 20090101
  6. SOLOSTAR [Suspect]
     Indication: TYPE 2 DIABETES MELLITUS
     Dates: start: 20090101
  7. ASPIRIN [Concomitant]

REACTIONS (5)
  - STENT PLACEMENT [None]
  - ARTERIAL INJURY [None]
  - NEUROPATHY PERIPHERAL [None]
  - INSOMNIA [None]
  - BLOOD GLUCOSE INCREASED [None]
